FAERS Safety Report 13651759 (Version 2)
Quarter: 2017Q3

REPORT INFORMATION
  Report Type: Spontaneous
  Country: FI (occurrence: FI)
  Receive Date: 20170614
  Receipt Date: 20170707
  Transmission Date: 20171127
  Serious: Yes (Other)
  Sender: FDA-Public Use
  Company Number: FI-AMGEN-FINSP2017062989

PATIENT
  Age: 21 Year
  Sex: Female
  Weight: 55 kg

DRUGS (7)
  1. BLINCYTO [Suspect]
     Active Substance: BLINATUMOMAB
     Indication: ACUTE LYMPHOCYTIC LEUKAEMIA
     Dosage: UNK
     Route: 042
     Dates: start: 20170306, end: 20170327
  2. VFEND [Concomitant]
     Active Substance: VORICONAZOLE
     Indication: PROPHYLAXIS
     Dosage: 200 UNIT, UNK
  3. PROGRAF [Concomitant]
     Active Substance: TACROLIMUS\TACROLIMUS ANHYDROUS
     Indication: PROPHYLAXIS
     Dosage: 0.5 UNIT, BID
     Dates: start: 20170504, end: 20170609
  4. BLINCYTO [Suspect]
     Active Substance: BLINATUMOMAB
     Dosage: UNK
     Route: 042
     Dates: start: 20170327
  5. CELLCEPT [Concomitant]
     Active Substance: MYCOPHENOLATE MOFETIL\MYCOPHENOLATE MOFETIL HYDROCHLORIDE
     Indication: PROPHYLAXIS
     Dosage: 1000 UNIT, BID
     Dates: start: 20170504, end: 20170609
  6. THIOTEPA. [Concomitant]
     Active Substance: THIOTEPA
     Indication: DRUG THERAPY
     Dosage: 5 MG/KG, 2 DOSES UNK
     Dates: start: 20170429
  7. BUSULFAN. [Concomitant]
     Active Substance: BUSULFAN
     Indication: DRUG THERAPY
     Dosage: 5 MG/KG, 2 DOSES UNK
     Dates: start: 20170429

REACTIONS (8)
  - Hyperhidrosis [Unknown]
  - Tremor [Unknown]
  - Muscle spasms [Unknown]
  - Haemoglobin decreased [Unknown]
  - Venoocclusive disease [Recovered/Resolved]
  - Sensory disturbance [Unknown]
  - Asthenia [Unknown]
  - Nausea [Unknown]

NARRATIVE: CASE EVENT DATE: 201706
